FAERS Safety Report 5207857-5 (Version None)
Quarter: 2007Q1

REPORT INFORMATION
  Report Type: 
  Country: None (occurrence: None)
  Receive Date: 20070112
  Receipt Date: 20070104
  Transmission Date: 20070707
  Serious: Yes (Hospitalization)
  Sender: FDA-Public Use
  Company Number: FR-PFIZER INC-2007002160

PATIENT
  Age: 84 Year
  Sex: Male

DRUGS (5)
  1. AMLOR [Suspect]
     Route: 048
  2. PERINDOPRIL ERBUMINE [Suspect]
     Route: 048
  3. PREVISCAN [Suspect]
     Indication: ATRIAL FLUTTER
     Route: 048
  4. GLUCOPHAGE [Suspect]
     Route: 048
  5. LASIX [Suspect]
     Route: 048

REACTIONS (4)
  - FALL [None]
  - HAEMATOMA [None]
  - INTERNATIONAL NORMALISED RATIO INCREASED [None]
  - SUBDURAL HAEMATOMA [None]
